FAERS Safety Report 9274399 (Version 1)
Quarter: 2013Q2

REPORT INFORMATION
  Report Type: Spontaneous
  Country: US (occurrence: US)
  Receive Date: 20130506
  Receipt Date: 20130506
  Transmission Date: 20140414
  Serious: No
  Sender: FDA-Public Use
  Company Number: US-009507513-1305USA001442

PATIENT
  Age: 21 Year
  Sex: Female
  Weight: 50.34 kg

DRUGS (1)
  1. IMPLANON [Suspect]
     Indication: CONTRACEPTION
     Dosage: 1 ROD UP TO 3 YEARS
     Dates: start: 20100330

REACTIONS (3)
  - Abdominal pain upper [Unknown]
  - Menstrual disorder [Unknown]
  - Incorrect drug administration duration [Unknown]
